FAERS Safety Report 15955976 (Version 1)
Quarter: 2019Q1

REPORT INFORMATION
  Report Type: Spontaneous
  Country: US (occurrence: US)
  Receive Date: 20190213
  Receipt Date: 20190213
  Transmission Date: 20190417
  Serious: No
  Sender: FDA-Public Use
  Company Number: US-BAYER-2019-030247

PATIENT
  Sex: Female
  Weight: 63.5 kg

DRUGS (3)
  1. CLARITIN [Suspect]
     Active Substance: LORATADINE
     Indication: HYPERSENSITIVITY
  2. DIPHENHYDRAMINE HYDROCHLORIDE. [Concomitant]
     Active Substance: DIPHENHYDRAMINE HYDROCHLORIDE
     Indication: HYPERSENSITIVITY
  3. EUCRISA [Concomitant]
     Active Substance: CRISABOROLE
     Indication: ECZEMA
     Dosage: UNK
     Dates: start: 20171123

REACTIONS (1)
  - Drug ineffective [None]
